FAERS Safety Report 7803384-7 (Version None)
Quarter: 2011Q4

REPORT INFORMATION
  Report Type: 
  Country: None (occurrence: None)
  Receive Date: 20111007
  Receipt Date: 20110928
  Transmission Date: 20120403
  Serious: Yes (Hospitalization)
  Sender: FDA-Public Use
  Company Number: US-ASTRAZENECA-2009UW05597

PATIENT
  Age: 56 Year
  Sex: Female
  Weight: 82.6 kg

DRUGS (8)
  1. SEROQUEL [Suspect]
     Indication: INAPPROPRIATE AFFECT
     Route: 048
     Dates: start: 20070101
  2. ADVAIR DISKUS 100/50 [Concomitant]
  3. ALBUTEROL [Concomitant]
  4. LISINOPRIL [Concomitant]
  5. ANTI INFLAMMATORY [Concomitant]
  6. SYMBICORT [Suspect]
     Route: 055
  7. NEXIUM [Suspect]
     Route: 048
  8. XANAX [Concomitant]

REACTIONS (5)
  - AGITATION [None]
  - LIVER DISORDER [None]
  - PAIN [None]
  - WEIGHT INCREASED [None]
  - AGGRESSION [None]
